FAERS Safety Report 9357900 (Version 1)
Quarter: 2013Q2

REPORT INFORMATION
  Report Type: Spontaneous
  Country: IT (occurrence: IT)
  Receive Date: 20130620
  Receipt Date: 20130620
  Transmission Date: 20140414
  Serious: Yes (Hospitalization)
  Sender: FDA-Public Use
  Company Number: IT-BRISTOL-MYERS SQUIBB COMPANY-18717652

PATIENT
  Age: 77 Year
  Sex: Female

DRUGS (7)
  1. COUMADIN TABS 5 MG [Suspect]
     Indication: ATRIAL FIBRILLATION
     Dosage: 1 DF = 1 UNIT?INTERRUPTED ON 02MAR2013
     Route: 048
     Dates: start: 19930101, end: 2013
  2. PLAUNAC [Concomitant]
     Dosage: TABS
  3. LASIX [Concomitant]
     Dosage: TABS
  4. LUCEN [Concomitant]
     Dosage: TABS
  5. TOTALIP [Concomitant]
     Dosage: TABS
  6. GLIBOMET [Concomitant]
     Dosage: 1 DF = 400+2.5 MG TABLETS
  7. DILZENE [Concomitant]
     Dosage: TABS

REACTIONS (4)
  - Haematoma [Unknown]
  - Asthenia [Unknown]
  - Feeling cold [Unknown]
  - Normochromic normocytic anaemia [Unknown]
